FAERS Safety Report 18826407 (Version 1)
Quarter: 2021Q1

REPORT INFORMATION
  Report Type: Spontaneous
  Country: DE (occurrence: DE)
  Receive Date: 20210202
  Receipt Date: 20210202
  Transmission Date: 20210419
  Serious: Yes (Hospitalization, Other)
  Sender: FDA-Public Use
  Company Number: DE-TEVA-2021-DE-1874839

PATIENT
  Age: 58 Year
  Sex: Female

DRUGS (8)
  1. 177 LU DOTATOC [Suspect]
     Active Substance: EDOTREOTIDE LUTETIUM LU-177
     Route: 042
     Dates: start: 201804, end: 201804
  2. TEMOZOLOMIDE. [Suspect]
     Active Substance: TEMOZOLOMIDE
     Indication: NEUROENDOCRINE TUMOUR
     Route: 048
     Dates: start: 201906, end: 201907
  3. 177 LU DOTATOC [Suspect]
     Active Substance: EDOTREOTIDE LUTETIUM LU-177
     Dosage: FOR 4 CYCLES
     Route: 042
     Dates: start: 201712, end: 201712
  4. LANREOTIDE AUTOGEL [Suspect]
     Active Substance: LANREOTIDE
     Indication: NEUROENDOCRINE TUMOUR
     Route: 065
  5. 177 LU DOTATOC [Suspect]
     Active Substance: EDOTREOTIDE LUTETIUM LU-177
     Indication: NEUROENDOCRINE TUMOUR
     Route: 042
     Dates: start: 201906, end: 201907
  6. CAPECITABINE. [Suspect]
     Active Substance: CAPECITABINE
     Indication: NEUROENDOCRINE TUMOUR
     Dosage: 1 CYCLE TREATMENT
     Route: 048
     Dates: start: 201906, end: 201907
  7. 177 LU DOTATOC [Suspect]
     Active Substance: EDOTREOTIDE LUTETIUM LU-177
     Route: 042
     Dates: start: 201802, end: 201802
  8. 177 LU DOTATOC [Suspect]
     Active Substance: EDOTREOTIDE LUTETIUM LU-177
     Route: 042
     Dates: start: 201806, end: 201806

REACTIONS (3)
  - Pneumonia fungal [Recovering/Resolving]
  - Febrile neutropenia [Recovering/Resolving]
  - Bone marrow failure [Recovering/Resolving]
